FAERS Safety Report 20745837 (Version 1)
Quarter: 2022Q2

REPORT INFORMATION
  Report Type: Spontaneous
  Country: GB (occurrence: GB)
  Receive Date: 20220425
  Receipt Date: 20220425
  Transmission Date: 20220721
  Serious: Yes (Hospitalization)
  Sender: FDA-Public Use
  Company Number: GB-BAYER-2022A054078

PATIENT
  Age: 77 Year
  Sex: Male

DRUGS (1)
  1. DAROLUTAMIDE [Suspect]
     Active Substance: DAROLUTAMIDE
     Indication: Prostate cancer
     Dosage: 600 MG
     Route: 048
     Dates: start: 20210709, end: 20210810

REACTIONS (3)
  - Mood altered [Recovered/Resolved]
  - Rash macular [Recovered/Resolved]
  - Rash pruritic [Recovered/Resolved]
